APPROVED DRUG PRODUCT: TAZIDIME IN PLASTIC CONTAINER
Active Ingredient: CEFTAZIDIME
Strength: 1GM/VIAL
Dosage Form/Route: INJECTABLE;INJECTION
Application: A062739 | Product #001
Applicant: ELI LILLY AND CO
Approved: Jul 10, 1986 | RLD: No | RS: No | Type: DISCN